FAERS Safety Report 10939218 (Version 2)
Quarter: 2015Q2

REPORT INFORMATION
  Report Type: Spontaneous
  Country: US (occurrence: US)
  Receive Date: 20150322
  Receipt Date: 20150525
  Transmission Date: 20150821
  Serious: No
  Sender: FDA-Public Use
  Company Number: US-JNJFOC-20131113049

PATIENT
  Sex: Male

DRUGS (2)
  1. NUCYNTA ER [Suspect]
     Active Substance: TAPENTADOL HYDROCHLORIDE
     Indication: HEADACHE
     Route: 048
  2. NUCYNTA ER [Suspect]
     Active Substance: TAPENTADOL HYDROCHLORIDE
     Indication: HEADACHE
     Dosage: TWICE A DAY
     Route: 048

REACTIONS (1)
  - Drug ineffective [Not Recovered/Not Resolved]
